FAERS Safety Report 7565586-7 (Version None)
Quarter: 2011Q2

REPORT INFORMATION
  Report Type: 
  Country: None (occurrence: None)
  Receive Date: 20110615
  Receipt Date: 20110607
  Transmission Date: 20111010
  Serious: Yes (Other)
  Sender: FDA-Public Use
  Company Number: 2011SP004948

PATIENT
  Age: 23 Year
  Sex: Female

DRUGS (2)
  1. NEXPLANON [Suspect]
  2. NEXPLANON [Suspect]
     Indication: PRODUCT USED FOR UNKNOWN INDICATION
     Dosage: 68 MG; SBDE
     Route: 059
     Dates: start: 20110121

REACTIONS (1)
  - SWELLING [None]
